FAERS Safety Report 8590957-X (Version None)
Quarter: 2012Q3

REPORT INFORMATION
  Report Type: 
  Country: None (occurrence: None)
  Receive Date: 20120813
  Receipt Date: 20120731
  Transmission Date: 20120928
  Serious: Yes (Death, Hospitalization)
  Sender: FDA-Public Use
  Company Number: CA-BAXTER-2012BAX013014

PATIENT
  Sex: Female

DRUGS (2)
  1. EXTRANEAL [Suspect]
     Indication: PERITONEAL DIALYSIS
     Dosage: UNKNOWN
     Route: 033
  2. DIANEAL LOW CALCIUM WITH DEXTROSE 1.5% AND CALCIUM 2.5MEQ/L [Suspect]
     Indication: PERITONEAL DIALYSIS
     Dosage: UNKNOWN
     Route: 033

REACTIONS (1)
  - DEATH [None]
